FAERS Safety Report 5300446-3 (Version None)
Quarter: 2007Q2

REPORT INFORMATION
  Report Type: 
  Country: None (occurrence: None)
  Receive Date: 20070411
  Receipt Date: 20070330
  Transmission Date: 20071010
  Serious: Yes (Other)
  Sender: FDA-Public Use
  Company Number: 239215

PATIENT
  Age: 13 Year
  Sex: Female
  Weight: 23.6 kg

DRUGS (1)
  1. NUTROPIN AQ [Suspect]
     Indication: GROWTH HORMONE DEFICIENCY
     Dosage: 2 MG, 7/WEEK, SUBCUTANEOUS
     Route: 058
     Dates: start: 20050819

REACTIONS (2)
  - KYPHOSIS [None]
  - SCOLIOSIS [None]
